FAERS Safety Report 23680224 (Version 1)
Quarter: 2024Q1

REPORT INFORMATION
  Report Type: Report from Study
  Country: NL (occurrence: NL)
  Receive Date: 20240327
  Receipt Date: 20240327
  Transmission Date: 20240410
  Serious: Yes (Other)
  Sender: FDA-Public Use
  Company Number: NL-ABBVIE-5639628

PATIENT
  Age: 76 Year
  Sex: Male

DRUGS (14)
  1. CARBIDOPA\LEVODOPA [Suspect]
     Active Substance: CARBIDOPA\LEVODOPA
     Indication: Parkinson^s disease
     Dosage: CND: 3.2ML/H, END: 2.0ML?REMAINS AT 24 HOURS
     Route: 050
     Dates: start: 20231124, end: 20231213
  2. CARBIDOPA\LEVODOPA [Suspect]
     Active Substance: CARBIDOPA\LEVODOPA
     Dosage: MD: 10.5ML, CD: 6.1ML/H, ED: 2.0ML, CND: 3.0ML/H, END: 2.0ML
     Route: 050
     Dates: start: 20231026, end: 20231109
  3. CARBIDOPA\LEVODOPA [Suspect]
     Active Substance: CARBIDOPA\LEVODOPA
     Dosage: REMAINS AT 16 HOURS
     Route: 050
  4. CARBIDOPA\LEVODOPA [Suspect]
     Active Substance: CARBIDOPA\LEVODOPA
     Dosage: CND: 3.2ML/H, END: 2.0ML?REMAINS AT 24 HOURS
     Route: 050
     Dates: start: 20231109, end: 20231124
  5. CARBIDOPA\LEVODOPA [Suspect]
     Active Substance: CARBIDOPA\LEVODOPA
     Dosage: MD: 10.5ML; CD: 6.3ML/H, ED: 2.0ML?REMAINS AT 16 HOURS
     Route: 050
     Dates: start: 20240321
  6. CARBIDOPA\LEVODOPA [Suspect]
     Active Substance: CARBIDOPA\LEVODOPA
     Route: 050
     Dates: start: 20211226
  7. CARBIDOPA\LEVODOPA [Suspect]
     Active Substance: CARBIDOPA\LEVODOPA
     Dosage: MD: 10.5ML, CD: 6.3ML/H, ED: 2.0ML?REMAINS AT 24 HOURS
     Route: 050
     Dates: start: 20231213, end: 20240122
  8. CARBIDOPA\LEVODOPA [Suspect]
     Active Substance: CARBIDOPA\LEVODOPA
     Dosage: CND: 3.4ML/H, END: 2.0ML
     Route: 050
     Dates: start: 20240122, end: 20240209
  9. CARBIDOPA\LEVODOPA [Suspect]
     Active Substance: CARBIDOPA\LEVODOPA
     Dosage: MD: 10.5ML; CD: 6.3ML/H, ED: 2.0ML?REMAINS AT 16 HOURS
     Route: 050
     Dates: start: 20240209, end: 20240321
  10. NEUPRO [Concomitant]
     Active Substance: ROTIGOTINE
     Indication: Parkinson^s disease
     Route: 062
  11. POLYETHYLENE GLYCOLS [Concomitant]
     Active Substance: POLYETHYLENE GLYCOLS
     Indication: Constipation
     Dosage: 1-2 SACHETS PER DAY
  12. LEVODOPA/BENSERAZIDE PCH [Concomitant]
     Indication: Parkinson^s disease
     Dosage: 100/25MG, 3 CAPSULES
     Route: 048
  13. LEVODOPA/BENSERAZIDE PCH [Concomitant]
     Indication: Parkinson^s disease
     Dosage: 100/25MG, 3 CAPSULES
     Route: 048
  14. LEVODOPA [Concomitant]
     Active Substance: LEVODOPA
     Indication: Product used for unknown indication

REACTIONS (14)
  - Cognitive disorder [Not Recovered/Not Resolved]
  - Parkinson^s disease [Not Recovered/Not Resolved]
  - General physical health deterioration [Not Recovered/Not Resolved]
  - Hallucination [Unknown]
  - Device loosening [Recovered/Resolved]
  - Device dislocation [Recovered/Resolved]
  - Confusional state [Not Recovered/Not Resolved]
  - Restlessness [Not Recovered/Not Resolved]
  - Device dislocation [Recovered/Resolved]
  - Memory impairment [Not Recovered/Not Resolved]
  - Dementia [Not Recovered/Not Resolved]
  - Incoherent [Not Recovered/Not Resolved]
  - Disturbance in attention [Not Recovered/Not Resolved]
  - Executive dysfunction [Not Recovered/Not Resolved]

NARRATIVE: CASE EVENT DATE: 20240101
